FAERS Safety Report 8909290 (Version 3)
Quarter: 2013Q2

REPORT INFORMATION
  Report Type: Spontaneous
  Country: JP (occurrence: None)
  Receive Date: 20121107
  Receipt Date: 20130530
  Transmission Date: 20140414
  Serious: Yes (Other)
  Sender: FDA-Public Use
  Company Number: 2010JP003335

PATIENT
  Age: 25 Year
  Sex: Female
  Weight: 62 kg

DRUGS (15)
  1. PROGRAF (TACROLIMUS) CAPSULE [Suspect]
     Indication: LUPUS NEPHRITIS
     Route: 048
     Dates: start: 20070815
  2. PREDONINE [Suspect]
     Indication: LUPUS NEPHRITIS
     Route: 048
     Dates: end: 20100819
  3. BREDININ (MIZORIBINE) [Concomitant]
  4. LENDORMIN (BROTIZOLAM) [Concomitant]
  5. ROHYPNOL (FLUNITRAZEPAM) [Concomitant]
  6. TAKEPRON (LANASOPRAZOLE) [Concomitant]
  7. JUVELA N (TOCOPHERYL NICOTINATE) [Concomitant]
  8. SELBEX (TEPRENONE) [Concomitant]
  9. MAGMITT (MAGNESIUM OXIDE) [Concomitant]
  10. KYUKI-KYOGAI-TO (HERBAL PREPARATION) [Concomitant]
  11. BUFFERIN (ACETYLSALICYLIC ACID) [Concomitant]
  12. SELENICA-R (VALPROATE SODIUM) [Concomitant]
  13. RHUBARB DRY EXTRACT (RHEUM PALMATUM DRY EXTRACT) [Concomitant]
  14. GASMOTIN (MOSAPRIDE CITRATE) [Concomitant]
  15. DAIO-KANZO-TO (GLYCYRRHIZA GLABRA, RHEUM PALMATUM) [Concomitant]

REACTIONS (3)
  - Mitral valve stenosis [None]
  - Cystitis [None]
  - Antiphospholipid syndrome [None]
